FAERS Safety Report 13187543 (Version 2)
Quarter: 2017Q2

REPORT INFORMATION
  Report Type: Spontaneous
  Country: US (occurrence: US)
  Receive Date: 20170206
  Receipt Date: 20170417
  Transmission Date: 20170830
  Serious: Yes (Hospitalization)
  Sender: FDA-Public Use
  Company Number: US-PFIZER INC-2017047207

PATIENT
  Age: 59 Year
  Sex: Female
  Weight: 94 kg

DRUGS (5)
  1. TIKOSYN [Suspect]
     Active Substance: DOFETILIDE
     Dosage: 20 MG, 1X/DAY
     Dates: start: 201212, end: 20170216
  2. METOPROLOL. [Concomitant]
     Active Substance: METOPROLOL
     Dosage: 40 MG, 1X/DAY
     Dates: start: 201212, end: 201512
  3. TIKOSYN [Suspect]
     Active Substance: DOFETILIDE
     Dosage: UNK UNK, 1X/DAY (TAKING IT ONLY ONCE A DAY)
  4. TIKOSYN [Suspect]
     Active Substance: DOFETILIDE
     Dosage: 250 UG, 2X/DAY
  5. TIKOSYN [Suspect]
     Active Substance: DOFETILIDE
     Indication: ATRIAL FIBRILLATION
     Dosage: 250 UG, 2X/DAY
     Dates: start: 201211

REACTIONS (15)
  - Dysphagia [Not Recovered/Not Resolved]
  - Malaise [Recovered/Resolved]
  - Hypoaesthesia [Recovered/Resolved]
  - Abdominal pain upper [Unknown]
  - Dyspepsia [Unknown]
  - Arthralgia [Recovered/Resolved]
  - Fatigue [Recovered/Resolved]
  - Back pain [Recovered/Resolved]
  - Dizziness [Recovered/Resolved]
  - Intentional product misuse [Recovered/Resolved]
  - Gastric disorder [Not Recovered/Not Resolved]
  - Headache [Recovered/Resolved]
  - Drug effect incomplete [Recovered/Resolved]
  - Chest pain [Not Recovered/Not Resolved]
  - Paraesthesia [Recovered/Resolved]

NARRATIVE: CASE EVENT DATE: 2012
